FAERS Safety Report 6456875-8 (Version None)
Quarter: 2009Q4

REPORT INFORMATION
  Report Type: 
  Country: None (occurrence: None)
  Receive Date: 20091124
  Receipt Date: 20091124
  Transmission Date: 20100525
  Serious: No
  Sender: FDA-Public Use
  Company Number: None

PATIENT
  Age: 57 Year
  Sex: Female
  Weight: 68.0396 kg

DRUGS (1)
  1. ACTONEL [Suspect]
     Indication: OSTEOPOROSIS
     Dosage: 1 PER WEEK
     Dates: start: 20030101, end: 20090301

REACTIONS (4)
  - BARRETT'S OESOPHAGUS [None]
  - GASTRITIS [None]
  - HIATUS HERNIA [None]
  - ULCER [None]
